FAERS Safety Report 5550821-7 (Version None)
Quarter: 2007Q4

REPORT INFORMATION
  Report Type: 
  Country: None (occurrence: None)
  Receive Date: 20071212
  Receipt Date: 20070517
  Transmission Date: 20080405
  Serious: No
  Sender: FDA-Public Use
  Company Number: US-AMGEN-KDL225407

PATIENT
  Sex: Female

DRUGS (2)
  1. ENBREL [Suspect]
     Indication: PSORIATIC ARTHROPATHY
     Route: 058
     Dates: start: 20061106
  2. ENBREL [Suspect]
     Indication: PSORIASIS

REACTIONS (6)
  - AGITATION [None]
  - COUGH [None]
  - DYSPHONIA [None]
  - HEADACHE [None]
  - INFLUENZA [None]
  - SINUSITIS [None]
